FAERS Safety Report 9181571 (Version 1)
Quarter: 2013Q1

REPORT INFORMATION
  Report Type: Spontaneous
  Country: US (occurrence: None)
  Receive Date: 20120614
  Receipt Date: 20120614
  Transmission Date: 20140127
  Serious: Yes (Other)
  Sender: FDA-Public Use
  Company Number: 2012US000551

PATIENT
  Age: 46 Year
  Sex: Male
  Weight: 92 kg

DRUGS (15)
  1. PROGRAF (TACROLIMUS) CAPSULE, 1MG [Suspect]
     Route: 048
     Dates: start: 2005
  2. TAMSULOSIN (TAMSULOSIN) [Concomitant]
  3. HYDRALAZINE (HYDRALAZINE) [Concomitant]
  4. DONEPEZIL (DONEPEZIL) [Concomitant]
  5. DILTIAZEM [Concomitant]
  6. CLONIDINE (CLONIDINE) [Concomitant]
  7. IMURAN (AZATHOPRINE) [Concomitant]
  8. LEVETIRACETAM (LEVETIRACETAM) [Concomitant]
  9. LABETALOL (LABETALOL) [Concomitant]
  10. MULTIVITAMIN (VITAMINS NOS) [Concomitant]
  11. PREDNISONE (PREDNISONE) [Concomitant]
  12. RISPERDAL (RISPERIDONE) [Concomitant]
  13. SODIUM BICARBONATE (SODIUM BICARBONATE) [Concomitant]
  14. TOPIRAMATE (TOPIRAMATE) [Concomitant]
  15. UNSPECIFIED MEDICATION [Concomitant]

REACTIONS (1)
  - Cardiac arrest [None]
